FAERS Safety Report 6857815-X (Version None)
Quarter: 2010Q3

REPORT INFORMATION
  Report Type: 
  Country: None (occurrence: None)
  Receive Date: 20100719
  Receipt Date: 20080130
  Transmission Date: 20110219
  Serious: No
  Sender: FDA-Public Use
  Company Number: US-PFIZER INC-2008009810

PATIENT
  Sex: Female
  Weight: 66.818 kg

DRUGS (2)
  1. CHANTIX [Suspect]
     Indication: SMOKING CESSATION THERAPY
     Route: 048
     Dates: start: 20080126
  2. MONTELUKAST SODIUM [Concomitant]
     Route: 048

REACTIONS (4)
  - FEELING ABNORMAL [None]
  - IRRITABILITY [None]
  - RESTLESSNESS [None]
  - TREMOR [None]
